FAERS Safety Report 12287235 (Version 2)
Quarter: 2016Q2

REPORT INFORMATION
  Report Type: Spontaneous
  Country: PT (occurrence: PT)
  Receive Date: 20160420
  Receipt Date: 20160428
  Transmission Date: 20160815
  Serious: Yes (Death, Hospitalization, Other)
  Sender: FDA-Public Use
  Company Number: PHHY2016PT052879

PATIENT
  Age: 51 Year
  Sex: Female

DRUGS (6)
  1. ROMIPLOSTIM [Concomitant]
     Active Substance: ROMIPLOSTIM
     Indication: PRODUCT USED FOR UNKNOWN INDICATION
     Dosage: 6-10 UG/KG
     Route: 065
     Dates: start: 201004
  2. REVOLADE [Suspect]
     Active Substance: ELTROMBOPAG
     Dosage: 50 MG, UNK
     Route: 065
  3. REVOLADE [Suspect]
     Active Substance: ELTROMBOPAG
     Indication: IMMUNE THROMBOCYTOPENIC PURPURA
     Dosage: 25 MG, QD
     Route: 065
  4. REVOLADE [Suspect]
     Active Substance: ELTROMBOPAG
     Dosage: 50 MG, UNK
     Route: 065
  5. REVOLADE [Suspect]
     Active Substance: ELTROMBOPAG
     Dosage: 75 MG, UNK
     Route: 065
  6. REVOLADE [Suspect]
     Active Substance: ELTROMBOPAG
     Dosage: 75 MG, UNK
     Route: 065

REACTIONS (10)
  - Cerebral haemorrhage [Fatal]
  - White blood cell count increased [Unknown]
  - Petechiae [Unknown]
  - Nausea [Unknown]
  - Platelet count decreased [Unknown]
  - Diarrhoea [Unknown]
  - Vomiting [Unknown]
  - Ecchymosis [Unknown]
  - Platelet count increased [Unknown]
  - Headache [Unknown]

NARRATIVE: CASE EVENT DATE: 201504
